FAERS Safety Report 5386401-6 (Version None)
Quarter: 2007Q3

REPORT INFORMATION
  Report Type: 
  Country: None (occurrence: None)
  Receive Date: 20070710
  Receipt Date: 20070710
  Transmission Date: 20080115
  Serious: Yes (Hospitalization)
  Sender: FDA-Public Use
  Company Number: None

PATIENT
  Sex: Male
  Weight: 120.2032 kg

DRUGS (1)
  1. LENALIDOMIDE 25 MG CELGENE [Suspect]
     Indication: MULTIPLE MYELOMA
     Dosage: 25 MG ONCE DAILY PO
     Route: 048
     Dates: start: 20070614, end: 20070705

REACTIONS (2)
  - DEEP VEIN THROMBOSIS [None]
  - PERIPHERAL ARTERY ANEURYSM [None]
